FAERS Safety Report 5953852-8 (Version None)
Quarter: 2008Q4

REPORT INFORMATION
  Report Type: 
  Country: None (occurrence: None)
  Receive Date: 20081114
  Receipt Date: 20081103
  Transmission Date: 20090506
  Serious: Yes (Congenital Anomaly, Other)
  Sender: FDA-Public Use
  Company Number: HU-PFIZER INC-2008095107

PATIENT
  Sex: Female
  Weight: 3.6 kg

DRUGS (1)
  1. ALPRAZOLAM [Suspect]
     Dosage: DAILY DOSE:30MG
     Route: 064

REACTIONS (8)
  - CLEFT UVULA [None]
  - DRUG EXPOSURE DURING PREGNANCY [None]
  - GASTROSCHISIS [None]
  - HAEMANGIOMA [None]
  - HAIR GROWTH ABNORMAL [None]
  - MATERNAL DRUGS AFFECTING FOETUS [None]
  - PROMINENT EPICANTHAL FOLDS [None]
  - TONGUE DISORDER [None]
